FAERS Safety Report 4542284-5 (Version None)
Quarter: 2004Q4

REPORT INFORMATION
  Report Type: 
  Country: None (occurrence: None)
  Receive Date: 20041227
  Receipt Date: 20041209
  Transmission Date: 20050328
  Serious: Yes (Other)
  Sender: FDA-Public Use
  Company Number: 2004109146

PATIENT
  Age: 42 Year
  Sex: Female
  Weight: 62.5964 kg

DRUGS (8)
  1. XANAX [Suspect]
     Indication: STRESS SYMPTOMS
     Dosage: 1 MG (0.5 MG, BID), ORAL
     Route: 047
     Dates: start: 20040607, end: 20040615
  2. VERAPAMIL [Concomitant]
  3. SPIRONOLACTONE [Concomitant]
  4. PROMETHAZINE [Concomitant]
  5. TRAMADOL HCL [Concomitant]
  6. ISOSORBIDE (ISOSORBIDE) [Concomitant]
  7. NITROGLYCERIN [Concomitant]
  8. GABAPENTIN [Concomitant]

REACTIONS (3)
  - ASTHENIA [None]
  - EPILEPSY [None]
  - GRAND MAL CONVULSION [None]
